FAERS Safety Report 18794520 (Version 1)
Quarter: 2021Q1

REPORT INFORMATION
  Report Type: Spontaneous
  Country: CH (occurrence: CH)
  Receive Date: 20210127
  Receipt Date: 20210127
  Transmission Date: 20210419
  Serious: Yes (Other)
  Sender: FDA-Public Use
  Company Number: CH-MYLANLABS-2021M1004519

PATIENT
  Sex: Male

DRUGS (1)
  1. NORMISON [TEMAZEPAM] [Suspect]
     Active Substance: TEMAZEPAM
     Indication: INSOMNIA
     Dosage: 1?2 CAPSULES PER DAY

REACTIONS (5)
  - Intentional product use issue [Unknown]
  - No adverse event [Unknown]
  - Dependence [Unknown]
  - Drug ineffective [Unknown]
  - Suspected product quality issue [Unknown]
